FAERS Safety Report 13586371 (Version 1)
Quarter: 2017Q2

REPORT INFORMATION
  Report Type: Spontaneous
  Country: FR (occurrence: FR)
  Receive Date: 20170526
  Receipt Date: 20170526
  Transmission Date: 20170830
  Serious: Yes (Life-Threatening, Other)
  Sender: FDA-Public Use
  Company Number: FR-PFIZER INC-2017228273

PATIENT
  Age: 54 Year
  Sex: Male

DRUGS (5)
  1. TAHOR [Suspect]
     Active Substance: ATORVASTATIN CALCIUM
     Indication: HYPERCHOLESTEROLAEMIA
     Dosage: UNK
  2. OLANZAPIN [Suspect]
     Active Substance: OLANZAPINE
     Indication: DEPRESSION
     Dosage: UNK
     Route: 048
  3. SELOKEN /00376902/ [Suspect]
     Active Substance: METOPROLOL TARTRATE
     Dosage: UNK
  4. ALCOHOL. [Concomitant]
     Active Substance: ALCOHOL
     Dosage: UNK
  5. NORSET [Suspect]
     Active Substance: MIRTAZAPINE
     Indication: DEPRESSION
     Dosage: UNK

REACTIONS (13)
  - Serotonin syndrome [Unknown]
  - Hepatocellular injury [Recovered/Resolved]
  - Hyperthermia [Recovered/Resolved]
  - Acute kidney injury [Recovered/Resolved]
  - Head injury [Unknown]
  - Malaise [Recovered/Resolved]
  - Anuria [Unknown]
  - Fall [Unknown]
  - Suicide attempt [Unknown]
  - Loss of consciousness [Recovered/Resolved]
  - Rhabdomyolysis [Recovered/Resolved]
  - Eye injury [Unknown]
  - Coma [Recovered/Resolved]

NARRATIVE: CASE EVENT DATE: 20161223
